FAERS Safety Report 12931049 (Version 1)
Quarter: 2016Q4

REPORT INFORMATION
  Report Type: Spontaneous
  Country: US (occurrence: US)
  Receive Date: 20161110
  Receipt Date: 20161110
  Transmission Date: 20170207
  Serious: No
  Sender: FDA-Public Use
  Company Number: US-JAZZ-2016-US-017671

PATIENT
  Sex: Female

DRUGS (33)
  1. XYREM [Suspect]
     Active Substance: SODIUM OXYBATE
     Indication: NARCOLEPSY
     Dosage: 2.25 G, BID
     Route: 048
     Dates: start: 201101, end: 201102
  2. XYREM [Suspect]
     Active Substance: SODIUM OXYBATE
     Dosage: 4 G, BID
     Route: 048
     Dates: start: 201111
  3. MAGNESIUM CARBONAT [Concomitant]
  4. VITAMIN E [Concomitant]
     Active Substance: .ALPHA.-TOCOPHEROL
  5. IMITREX [Concomitant]
     Active Substance: SUMATRIPTAN SUCCINATE
  6. PATANASE [Concomitant]
     Active Substance: OLOPATADINE HYDROCHLORIDE
  7. VITAMIN C [Concomitant]
     Active Substance: ASCORBIC ACID
  8. XYREM [Suspect]
     Active Substance: SODIUM OXYBATE
     Dosage: DOSE ADJUSTMENTS
     Route: 048
     Dates: start: 201102, end: 201111
  9. FLONASE [Concomitant]
     Active Substance: FLUTICASONE PROPIONATE
  10. MILK THISTLE [Concomitant]
     Active Substance: MILK THISTLE
  11. NASONEX [Concomitant]
     Active Substance: MOMETASONE FUROATE
  12. RESVERATROL [Concomitant]
     Active Substance: RESVERATROL
  13. VITAMIN D [Concomitant]
     Active Substance: CHOLECALCIFEROL
  14. WELLBUTRIN [Concomitant]
     Active Substance: BUPROPION HYDROCHLORIDE
  15. FLUCONAZOLE. [Concomitant]
     Active Substance: FLUCONAZOLE
  16. FISH OIL CONCENTRATE [Concomitant]
     Active Substance: FISH OIL
  17. CYTOMEL [Concomitant]
     Active Substance: LIOTHYRONINE SODIUM
  18. ZINC ACETATE [Concomitant]
     Active Substance: ZINC ACETATE
  19. PHENYLALANINE, DL- [Concomitant]
     Active Substance: PHENYLALANINE, DL-
  20. FLEXERIL [Concomitant]
     Active Substance: CYCLOBENZAPRINE HYDROCHLORIDE
  21. L-CARNITINE [Concomitant]
     Active Substance: LEVOCARNITINE
  22. ALPHA LIPOIC ACID [Concomitant]
     Active Substance: .ALPHA.-LIPOIC ACID
  23. MULTIVITAMIN [Concomitant]
     Active Substance: VITAMINS
  24. SULINDAC. [Concomitant]
     Active Substance: SULINDAC
  25. SYNTHROID [Concomitant]
     Active Substance: LEVOTHYROXINE SODIUM
  26. ZANTAC [Concomitant]
     Active Substance: RANITIDINE HYDROCHLORIDE
  27. DHEA [Concomitant]
     Active Substance: PRASTERONE
  28. LEVOTHYROXINE. [Concomitant]
     Active Substance: LEVOTHYROXINE
  29. ARMOUR THYROID [Concomitant]
     Active Substance: THYROID, PORCINE
  30. CALCIUM +D [Concomitant]
     Active Substance: CALCIUM\VITAMIN D
  31. GINKGO BILOBA PLUS [Concomitant]
  32. POTASSIUM ACETATE. [Concomitant]
     Active Substance: POTASSIUM ACETATE
  33. ZOFRAN [Concomitant]
     Active Substance: ONDANSETRON HYDROCHLORIDE

REACTIONS (1)
  - Infection [Unknown]
